FAERS Safety Report 9630136 (Version 1)
Quarter: 2013Q4

REPORT INFORMATION
  Report Type: Spontaneous
  Country: MX (occurrence: MX)
  Receive Date: 20131017
  Receipt Date: 20131017
  Transmission Date: 20140711
  Serious: Yes (Other)
  Sender: FDA-Public Use
  Company Number: PHHY2013MX116677

PATIENT
  Age: 57 Year
  Sex: Female

DRUGS (4)
  1. EXFORGE HCT [Suspect]
     Indication: HYPERTENSION
     Dosage: 1 DF(320/10/25MG), DAILY
     Route: 048
     Dates: start: 20110623, end: 201304
  2. EXFORGE HCT [Suspect]
     Dosage: 1 DF(320/10/25MG), EVERY OTHER DAY
     Route: 048
     Dates: start: 201304
  3. AMINO ACIDS [Concomitant]
     Indication: MEDICAL DIET
     Dosage: 2 UKN, DAILY
     Dates: start: 201302
  4. AMINO ACIDS [Concomitant]
     Indication: RENAL IMPAIRMENT

REACTIONS (2)
  - Renal impairment [Not Recovered/Not Resolved]
  - Condition aggravated [Not Recovered/Not Resolved]
